FAERS Safety Report 4326326-8 (Version None)
Quarter: 2004Q1

REPORT INFORMATION
  Report Type: 
  Country: None (occurrence: None)
  Receive Date: 20040323
  Receipt Date: 20040316
  Transmission Date: 20041129
  Serious: Yes (Other)
  Sender: FDA-Public Use
  Company Number: 001058

PATIENT
  Age: 36 Year
  Sex: Female
  Weight: 63.5 kg

DRUGS (3)
  1. PLAN B (LEVONORGESTREL) TABLET, 0.75 MG [Suspect]
     Indication: CONTRACEPTION
     Dosage: 2.00 TABLET, SINGLE, ORAL
     Route: 048
     Dates: start: 20040121
  2. POTASSIUM (POTASSIUM) [Concomitant]
  3. IRON (IRON) [Concomitant]

REACTIONS (7)
  - ABDOMINAL PAIN LOWER [None]
  - ABORTION SPONTANEOUS [None]
  - COMPLICATIONS OF MATERNAL EXPOSURE TO THERAPEUTIC DRUGS [None]
  - DIARRHOEA [None]
  - MATERNAL DRUGS AFFECTING FOETUS [None]
  - PREGNANCY [None]
  - VAGINAL HAEMORRHAGE [None]
